FAERS Safety Report 15375072 (Version 1)
Quarter: 2018Q3

REPORT INFORMATION
  Report Type: Spontaneous
  Country: US (occurrence: US)
  Receive Date: 20180912
  Receipt Date: 20180912
  Transmission Date: 20181010
  Serious: Yes (Hospitalization)
  Sender: FDA-Public Use
  Company Number: US-OTSUKA-2018_019767

PATIENT

DRUGS (1)
  1. ABILIFY [Suspect]
     Active Substance: ARIPIPRAZOLE
     Indication: BIPOLAR DISORDER
     Dosage: 30 MG, QD
     Route: 065
     Dates: start: 2008, end: 2016

REACTIONS (5)
  - Obsessive-compulsive disorder [Recovered/Resolved]
  - Incorrect dose administered [Unknown]
  - Mental disorder [Unknown]
  - Economic problem [Unknown]
  - Gambling disorder [Recovered/Resolved]
